FAERS Safety Report 17156117 (Version 1)
Quarter: 2019Q4

REPORT INFORMATION
  Report Type: Report from Study
  Country: US (occurrence: US)
  Receive Date: 20191216
  Receipt Date: 20191216
  Transmission Date: 20200122
  Serious: Yes (Hospitalization, Other)
  Sender: FDA-Public Use
  Company Number: US-ROCHE-2479853

PATIENT
  Age: 75 Year
  Sex: Male
  Weight: 107.6 kg

DRUGS (1)
  1. ESBRIET [Suspect]
     Active Substance: PIRFENIDONE
     Indication: IDIOPATHIC PULMONARY FIBROSIS
     Dosage: ONE PILL 3 TIMES A DAY
     Route: 048
     Dates: start: 20191105, end: 20191116

REACTIONS (9)
  - Dyspnoea [Not Recovered/Not Resolved]
  - Fluid retention [Not Recovered/Not Resolved]
  - Fatigue [Recovered/Resolved]
  - Pleural effusion [Unknown]
  - Cardiac disorder [Unknown]
  - Nausea [Recovered/Resolved]
  - Pulmonary oedema [Unknown]
  - Oxygen consumption increased [Not Recovered/Not Resolved]
  - Cardiac flutter [Not Recovered/Not Resolved]

NARRATIVE: CASE EVENT DATE: 20191105
